FAERS Safety Report 17011652 (Version 1)
Quarter: 2019Q4

REPORT INFORMATION
  Report Type: Spontaneous
  Country: US (occurrence: US)
  Receive Date: 20191108
  Receipt Date: 20191108
  Transmission Date: 20200122
  Serious: Yes (Death)
  Sender: FDA-Public Use
  Company Number: US-ALLERGAN-1944883US

PATIENT
  Sex: Male

DRUGS (9)
  1. LORAZEPAM. [Suspect]
     Active Substance: LORAZEPAM
     Indication: SEIZURE
     Route: 065
  2. LEVETIRACETAM. [Suspect]
     Active Substance: LEVETIRACETAM
     Indication: SEIZURE
     Route: 065
  3. HYDROCHLOROTHIAZIDE UNK [Suspect]
     Active Substance: HYDROCHLOROTHIAZIDE
     Indication: FLUID IMBALANCE
  4. LEVOTHYROXINE. [Concomitant]
     Active Substance: LEVOTHYROXINE
     Indication: THYROXINE ABNORMAL
  5. ENALAPRIL [Suspect]
     Active Substance: ENALAPRIL
     Indication: FLUID IMBALANCE
  6. ALBUMIN [Suspect]
     Active Substance: ALBUMIN HUMAN
     Indication: OEDEMA
     Dosage: UNK
     Route: 042
  7. ENALAPRIL [Suspect]
     Active Substance: ENALAPRIL
     Indication: NEPHROTIC SYNDROME
     Dosage: UNK
     Route: 048
  8. HYDROCHLOROTHIAZIDE UNK [Suspect]
     Active Substance: HYDROCHLOROTHIAZIDE
     Indication: NEPHROTIC SYNDROME
     Dosage: UNK
     Route: 048
  9. FUROSEMIDE. [Suspect]
     Active Substance: FUROSEMIDE
     Indication: OEDEMA
     Dosage: UNK
     Route: 042

REACTIONS (8)
  - Respiratory distress [Fatal]
  - Pleural effusion [Fatal]
  - Oedema peripheral [Unknown]
  - Pulmonary oedema [Fatal]
  - Acute kidney injury [Fatal]
  - Hyponatraemia [Unknown]
  - Metabolic acidosis [Unknown]
  - Off label use [Unknown]
